FAERS Safety Report 14673032 (Version 5)
Quarter: 2021Q2

REPORT INFORMATION
  Report Type: Other
  Country: US (occurrence: US)
  Receive Date: 20180323
  Receipt Date: 20210623
  Transmission Date: 20210716
  Serious: Yes (Hospitalization)
  Sender: FDA-Public Use
  Company Number: US-ROCHE-2092889

PATIENT
  Age: 70 Year
  Sex: Female
  Weight: 46.31 kg

DRUGS (7)
  1. ZALEPLON. [Concomitant]
     Active Substance: ZALEPLON
     Dosage: SLEEP
  2. OCREVUS [Suspect]
     Active Substance: OCRELIZUMAB
     Indication: MULTIPLE SCLEROSIS
     Dosage: FITST SPLIT DOSE
     Route: 042
     Dates: start: 20170727, end: 20170810
  3. BIOTIN [Concomitant]
     Active Substance: BIOTIN
     Dosage: 4 CAPSULE A DAY;ONGOING:YES
  4. OCREVUS [Suspect]
     Active Substance: OCRELIZUMAB
     Dosage: SECOND SPLIT DOSE
     Route: 042
     Dates: start: 20170810
  5. TEMAZEPAM. [Concomitant]
     Active Substance: TEMAZEPAM
  6. BACLOFEN. [Concomitant]
     Active Substance: BACLOFEN
  7. BENADRYL [Suspect]
     Active Substance: DIPHENHYDRAMINE HYDROCHLORIDE
     Indication: PREMEDICATION
     Route: 065
     Dates: start: 20190114

REACTIONS (4)
  - Colonic abscess [Recovered/Resolved]
  - Illness [Unknown]
  - Diverticulitis [Recovering/Resolving]
  - Feeling drunk [Recovering/Resolving]

NARRATIVE: CASE EVENT DATE: 20180113
